FAERS Safety Report 14664344 (Version 4)
Quarter: 2021Q1

REPORT INFORMATION
  Report Type: Report from Study
  Country: US (occurrence: US)
  Receive Date: 20180321
  Receipt Date: 20210315
  Transmission Date: 20210419
  Serious: Yes (Hospitalization, Disabling, Other)
  Sender: FDA-Public Use
  Company Number: US-SA-2018SA057277

PATIENT
  Age: 28 Year
  Sex: Female

DRUGS (3)
  1. ALEMTUZUMAB [Suspect]
     Active Substance: ALEMTUZUMAB
     Indication: MULTIPLE SCLEROSIS
     Dosage: 12 MG, QD
     Route: 041
     Dates: start: 20180205, end: 20180209
  2. ALEMTUZUMAB [Suspect]
     Active Substance: ALEMTUZUMAB
     Dosage: 12 MG, QD
     Route: 041
     Dates: start: 20190722, end: 20190724
  3. OCREVUS [Concomitant]
     Active Substance: OCRELIZUMAB
     Dosage: UNK
     Route: 065
     Dates: start: 202007

REACTIONS (25)
  - Swelling face [Unknown]
  - Feeling abnormal [Recovered/Resolved]
  - Hyperaesthesia [Recovered/Resolved]
  - Respiratory tract infection viral [Recovering/Resolving]
  - Chest discomfort [Unknown]
  - Helicobacter gastritis [Recovering/Resolving]
  - Hypoaesthesia [Not Recovered/Not Resolved]
  - Sensory disturbance [Not Recovered/Not Resolved]
  - Tooth extraction [Recovered/Resolved]
  - Chromaturia [Not Recovered/Not Resolved]
  - Urinary tract infection [Unknown]
  - Dyspnoea [Unknown]
  - Gait inability [Unknown]
  - Kidney infection [Unknown]
  - Dysphagia [Unknown]
  - Mobility decreased [Unknown]
  - Dysuria [Not Recovered/Not Resolved]
  - Fatigue [Unknown]
  - Headache [Recovering/Resolving]
  - Multiple sclerosis [Unknown]
  - Musculoskeletal disorder [Unknown]
  - Blood urine present [Unknown]
  - Confusional state [Recovered/Resolved]
  - Condition aggravated [Unknown]
  - Back pain [Not Recovered/Not Resolved]

NARRATIVE: CASE EVENT DATE: 2018
